FAERS Safety Report 18511028 (Version 1)
Quarter: 2020Q4

REPORT INFORMATION
  Report Type: Spontaneous
  Country: US (occurrence: US)
  Receive Date: 20201117
  Receipt Date: 20201117
  Transmission Date: 20210114
  Serious: Yes (Other)
  Sender: FDA-Public Use
  Company Number: None

PATIENT

DRUGS (1)
  1. BLISTEX LIP MEDEX [Suspect]
     Active Substance: CAMPHOR (SYNTHETIC)\MENTHOL\PETROLATUM\PHENOL

REACTIONS (1)
  - Lip blister [None]

NARRATIVE: CASE EVENT DATE: 20201116
